FAERS Safety Report 5399073-1 (Version None)
Quarter: 2007Q3

REPORT INFORMATION
  Report Type: 
  Country: None (occurrence: None)
  Receive Date: 20070725
  Receipt Date: 20070725
  Transmission Date: 20080115
  Serious: Yes (Death, Hospitalization)
  Sender: FDA-Public Use
  Company Number: None

PATIENT
  Age: 85 Year
  Sex: Male
  Weight: 72.1219 kg

DRUGS (2)
  1. CEFTRIAXONE [Suspect]
     Indication: PNEUMONIA
     Dosage: 1GM DAILY IV
     Route: 042
     Dates: start: 20070504, end: 20070510
  2. AZITHROMYCIN [Suspect]
     Indication: PNEUMONIA
     Dosage: 250MG DAILY IV
     Route: 042
     Dates: start: 20070504, end: 20070510

REACTIONS (9)
  - BODY TEMPERATURE INCREASED [None]
  - CLOSTRIDIUM DIFFICILE COLITIS [None]
  - DIARRHOEA [None]
  - DIVERTICULITIS [None]
  - INTESTINAL ISCHAEMIA [None]
  - MEGACOLON [None]
  - MESENTERIC OCCLUSION [None]
  - SEPSIS [None]
  - WHITE BLOOD CELL COUNT INCREASED [None]
